FAERS Safety Report 18744253 (Version 1)
Quarter: 2021Q1

REPORT INFORMATION
  Report Type: Spontaneous
  Country: US (occurrence: US)
  Receive Date: 20210115
  Receipt Date: 20210115
  Transmission Date: 20210419
  Serious: Yes (Other)
  Sender: FDA-Public Use
  Company Number: US-GILEAD-2021-0512968

PATIENT
  Age: 58 Year
  Sex: Male

DRUGS (2)
  1. EPCLUSA [Suspect]
     Active Substance: SOFOSBUVIR\VELPATASVIR
     Indication: HEPATITIS C
     Dosage: 1 DOSAGE FORM
     Route: 048
  2. CYCLOPHOSPHAMIDE;DOXORUBICIN;PREDNISOLONE;RITUXIMAB;VINCRISTINE [Concomitant]

REACTIONS (2)
  - Hepatitis C [Unknown]
  - Drug ineffective [Unknown]
